FAERS Safety Report 6516147-X (Version None)
Quarter: 2009Q4

REPORT INFORMATION
  Report Type: 
  Country: None (occurrence: None)
  Receive Date: 20091223
  Receipt Date: 20091210
  Transmission Date: 20100525
  Serious: Yes (Death, Hospitalization)
  Sender: FDA-Public Use
  Company Number: US-JNJFOC-20091104151

PATIENT
  Age: 61 Year
  Sex: Female
  Weight: 68.04 kg

DRUGS (8)
  1. TYLENOL 8 HOUR MUSCLES + PAIN [Suspect]
     Route: 048
  2. TYLENOL 8 HOUR MUSCLES + PAIN [Suspect]
     Indication: MUSCLE INJURY
     Route: 048
  3. TYLENOL (CAPLET) [Suspect]
     Indication: TENDON INJURY
     Route: 048
  4. TYLENOL (CAPLET) [Suspect]
     Indication: MUSCLE INJURY
     Route: 048
  5. DIUREX [Suspect]
     Indication: DIURETIC THERAPY
  6. DIPHENHYDRAMINE HCL [Concomitant]
  7. PREDNISONE [Concomitant]
     Indication: INFLAMMATION
  8. PREDNISONE [Concomitant]
     Indication: BACK PAIN

REACTIONS (7)
  - ABDOMINAL PAIN UPPER [None]
  - FEELING HOT [None]
  - HAEMATEMESIS [None]
  - JAUNDICE [None]
  - MALIGNANT HEPATOBILIARY NEOPLASM [None]
  - PERIPHERAL COLDNESS [None]
  - THERAPEUTIC RESPONSE DECREASED [None]
